FAERS Safety Report 24628275 (Version 1)
Quarter: 2024Q4

REPORT INFORMATION
  Report Type: Spontaneous
  Country: FR (occurrence: FR)
  Receive Date: 20241117
  Receipt Date: 20241117
  Transmission Date: 20250114
  Serious: Yes (Other)
  Sender: AUROBINDO
  Company Number: FR-002147023-NVSC2023FR170509

PATIENT
  Age: 79 Year
  Sex: Female
  Weight: 59 kg

DRUGS (9)
  1. AZACITIDINE [Suspect]
     Active Substance: AZACITIDINE
     Indication: Acute myeloid leukaemia
     Dosage: 114.8 MG, (75 MG/M2), ON DAYS 1-5 AND 8-9 OF EACH 21-DAY CYCLE
     Route: 058
     Dates: start: 20230626, end: 20230726
  2. AZACITIDINE [Suspect]
     Active Substance: AZACITIDINE
     Dosage: 114.8 MG, (75 MG/M2), ON DAYS 1-5 AND 8- 9 OF EACH 21-DAY CYCLE
     Route: 058
     Dates: start: 20230626, end: 20230626
  3. AZACITIDINE [Suspect]
     Active Substance: AZACITIDINE
     Dosage: 114.8 MG, (75 MG/M2), ON DAYS 1-5 AND 8- 9 OF EACH 21-DAY CYCLE
     Route: 058
     Dates: start: 20230628, end: 20230726
  4. AZACITIDINE [Suspect]
     Active Substance: AZACITIDINE
     Dosage: 114.8 MG, (75 MG/M2), ON DAYS 1-5 AND 8- 9 OF EACH 21-DAY CYCLE
     Route: 058
     Dates: start: 20230731, end: 20240410
  5. AZACITIDINE [Suspect]
     Active Substance: AZACITIDINE
     Dosage: 103.5 MG, (75 MG/M2), ON DAYS 1-5 AND 8- 9 OF EACH 21-DAY CYCLE
     Route: 058
     Dates: start: 20240506, end: 20240510
  6. AZACITIDINE [Suspect]
     Active Substance: AZACITIDINE
     Dosage: 103.5 MG, (75 MG/M2), ON DAYS 1-5 AND 8- 9 OF EACH 21-DAY CYCLE
     Route: 058
     Dates: start: 20240513, end: 20240514
  7. AZACITIDINE [Suspect]
     Active Substance: AZACITIDINE
     Dosage: 103.5 MG, (75 MG/M2), ON DAYS 1-5 AND 8- 9 OF EACH 21-DAY CYCLE
     Route: 058
     Dates: start: 20240617, end: 20240625
  8. AZACITIDINE [Suspect]
     Active Substance: AZACITIDINE
     Dosage: 103.5 MG (75 MG/M2), ON DAYS 1-5 AND 8- 9 OF EACH 21-DAY CYCL
     Route: 058
     Dates: start: 20240729, end: 20240806
  9. AZACITIDINE [Suspect]
     Active Substance: AZACITIDINE
     Dosage: 103.5 MG (75 MG/M2), ON DAYS 1-5 AND 8- 9 OF EACH 21-DAY CYCL
     Route: 058
     Dates: start: 20240909, end: 20240909

REACTIONS (1)
  - Hepatic cytolysis [Recovering/Resolving]

NARRATIVE: CASE EVENT DATE: 20230727
